FAERS Safety Report 10277380 (Version 4)
Quarter: 2014Q4

REPORT INFORMATION
  Report Type: Report from Study
  Country: US (occurrence: US)
  Receive Date: 20140703
  Receipt Date: 20141014
  Transmission Date: 20150528
  Serious: Yes (Hospitalization)
  Sender: FDA-Public Use
  Company Number: US-BRISTOL-MYERS SQUIBB COMPANY-21110697

PATIENT
  Age: 61 Year
  Sex: Male

DRUGS (2)
  1. NIVOLUMAB [Suspect]
     Active Substance: NIVOLUMAB
     Indication: MALIGNANT MELANOMA
     Dates: start: 20140516, end: 20140619
  2. IPILIMUMAB [Suspect]
     Active Substance: IPILIMUMAB
     Indication: MALIGNANT MELANOMA
     Dates: start: 20140516, end: 20140619

REACTIONS (4)
  - Ileus paralytic [Recovering/Resolving]
  - Diarrhoea [Unknown]
  - Colitis [Recovering/Resolving]
  - Abdominal pain [Unknown]

NARRATIVE: CASE EVENT DATE: 201406
